FAERS Safety Report 4300710-0 (Version None)
Quarter: 2004Q1

REPORT INFORMATION
  Report Type: 
  Country: None (occurrence: None)
  Receive Date: 20040218
  Receipt Date: 20040130
  Transmission Date: 20041129
  Serious: Yes (Other)
  Sender: FDA-Public Use
  Company Number: USA040258187

PATIENT

DRUGS (1)
  1. ZYPREXA [Suspect]

REACTIONS (1)
  - PLEURAL EFFUSION [None]
